FAERS Safety Report 13255795 (Version 1)
Quarter: 2017Q1

REPORT INFORMATION
  Report Type: Spontaneous
  Country: BR (occurrence: BR)
  Receive Date: 20170221
  Receipt Date: 20170221
  Transmission Date: 20170428
  Serious: Yes (Life-Threatening, Hospitalization, Disabling, Other)
  Sender: FDA-Public Use
  Company Number: BR-JNJFOC-20170217270

PATIENT
  Age: 22 Year
  Sex: Male

DRUGS (1)
  1. HALDOL [Suspect]
     Active Substance: HALOPERIDOL
     Indication: NERVOUS SYSTEM DISORDER
     Route: 042
     Dates: start: 20170203

REACTIONS (12)
  - Movement disorder [Not Recovered/Not Resolved]
  - Skin discolouration [Unknown]
  - Disturbance in attention [Unknown]
  - Peripheral swelling [Not Recovered/Not Resolved]
  - Hypoaesthesia [Not Recovered/Not Resolved]
  - Drug administered at inappropriate site [Unknown]
  - Memory impairment [Unknown]
  - Pain [Unknown]
  - Product use issue [Unknown]
  - Restlessness [Unknown]
  - Erythema [Not Recovered/Not Resolved]
  - Off label use [Unknown]

NARRATIVE: CASE EVENT DATE: 20170203
